FAERS Safety Report 5242929-0 (Version None)
Quarter: 2007Q1

REPORT INFORMATION
  Report Type: 
  Country: None (occurrence: None)
  Receive Date: 20070215
  Receipt Date: 20070206
  Transmission Date: 20070707
  Serious: Yes (Hospitalization)
  Sender: FDA-Public Use
  Company Number: 230954K07USA

PATIENT
  Age: 51 Year
  Sex: Male

DRUGS (11)
  1. REBIF [Suspect]
     Indication: MULTIPLE SCLEROSIS
     Dosage: 44 MCG, 3 IN 1 WEEKS, SUBCUTANEOUS
     Route: 058
     Dates: start: 20061106
  2. LIPITOR [Concomitant]
  3. PERMAX [Concomitant]
  4. PROVIGIL [Concomitant]
  5. ZANAFLEX [Concomitant]
  6. CYMBALTA [Concomitant]
  7. LYRICA [Concomitant]
  8. CARBATROL [Concomitant]
  9. OXYCONTIN [Concomitant]
  10. KLONOPIN [Concomitant]
  11. SOLU-MEDROL [Concomitant]

REACTIONS (4)
  - CARDIAC FAILURE CONGESTIVE [None]
  - INFLUENZA [None]
  - PULMONARY OEDEMA [None]
  - VENTRICULAR DYSFUNCTION [None]
